FAERS Safety Report 20900961 (Version 1)
Quarter: 2022Q2

REPORT INFORMATION
  Report Type: Spontaneous
  Country: US (occurrence: None)
  Receive Date: 20220601
  Receipt Date: 20220601
  Transmission Date: 20220721
  Serious: Yes (Hospitalization)
  Sender: FDA-Public Use
  Company Number: None

PATIENT

DRUGS (1)
  1. CISPLATIN [Suspect]
     Active Substance: CISPLATIN
     Dates: end: 20220517

REACTIONS (3)
  - Dehydration [None]
  - Pyrexia [None]
  - Blood pressure decreased [None]

NARRATIVE: CASE EVENT DATE: 20220522
